FAERS Safety Report 4810163-1 (Version None)
Quarter: 2005Q4

REPORT INFORMATION
  Report Type: 
  Country: None (occurrence: None)
  Receive Date: 20051026
  Receipt Date: 20050722
  Transmission Date: 20060501
  Serious: Yes (Hospitalization)
  Sender: FDA-Public Use
  Company Number: US-MERCK-0507USA03823

PATIENT
  Age: 40 Year
  Sex: Male
  Weight: 93 kg

DRUGS (6)
  1. VIOXX [Suspect]
     Indication: BACK PAIN
     Route: 048
     Dates: start: 20010307, end: 20010313
  2. VIOXX [Suspect]
     Route: 048
     Dates: start: 20010314, end: 20030201
  3. VIOXX [Suspect]
     Route: 048
     Dates: start: 20030101
  4. VIOXX [Suspect]
     Indication: PAIN IN EXTREMITY
     Route: 048
     Dates: start: 20010307, end: 20010313
  5. VIOXX [Suspect]
     Route: 048
     Dates: start: 20010314, end: 20030201
  6. VIOXX [Suspect]
     Route: 048
     Dates: start: 20030101

REACTIONS (3)
  - CORONARY ARTERY DISEASE [None]
  - MYOCARDIAL INFARCTION [None]
  - OVERDOSE [None]
